FAERS Safety Report 15554962 (Version 1)
Quarter: 2018Q4

REPORT INFORMATION
  Report Type: Spontaneous
  Country: CA (occurrence: CA)
  Receive Date: 20181026
  Receipt Date: 20181026
  Transmission Date: 20190205
  Serious: Yes (Other)
  Sender: FDA-Public Use
  Company Number: CA-AMGEN-CANSP2018148395

PATIENT
  Age: 16 Year
  Sex: Female
  Weight: 41 kg

DRUGS (6)
  1. ENBREL [Suspect]
     Active Substance: ETANERCEPT
     Indication: JUVENILE IDIOPATHIC ARTHRITIS
     Dosage: 17.5 MG, 2 TIMES/WK
     Route: 065
  2. AMLODIPINE [Concomitant]
     Active Substance: AMLODIPINE BESYLATE
     Indication: PRODUCT USED FOR UNKNOWN INDICATION
     Dosage: 7.5 MG, QD
     Route: 048
  3. TRAMADOL. [Concomitant]
     Active Substance: TRAMADOL
     Indication: PRODUCT USED FOR UNKNOWN INDICATION
     Dosage: 50 MG, UNK
  4. HUMIRA [Suspect]
     Active Substance: ADALIMUMAB
     Indication: JUVENILE IDIOPATHIC ARTHRITIS
     Dosage: 40 MG, Q2WK
     Route: 058
  5. METHOTREXATE. [Concomitant]
     Active Substance: METHOTREXATE
     Indication: PRODUCT USED FOR UNKNOWN INDICATION
     Dosage: UNK
  6. PREDNISONE. [Suspect]
     Active Substance: PREDNISONE
     Indication: STILL^S DISEASE
     Dosage: 7.5 MG, BID
     Route: 048

REACTIONS (19)
  - Blood creatinine decreased [Unknown]
  - Fibrin D dimer increased [Unknown]
  - Hypertension [Unknown]
  - White blood cell count increased [Unknown]
  - Toxicity to various agents [Unknown]
  - Growth failure [Unknown]
  - Hip arthroplasty [Unknown]
  - Serum ferritin increased [Unknown]
  - Red blood cell sedimentation rate increased [Unknown]
  - Blood fibrinogen increased [Unknown]
  - Polyarthritis [Unknown]
  - Drug effect incomplete [Unknown]
  - Drug dependence [Unknown]
  - Platelet count increased [Unknown]
  - Bone density decreased [Unknown]
  - Granulocyte count increased [Unknown]
  - Monocyte count increased [Unknown]
  - C-reactive protein increased [Unknown]
  - Neutrophil count increased [Unknown]
